FAERS Safety Report 18610169 (Version 1)
Quarter: 2020Q4

REPORT INFORMATION
  Report Type: Spontaneous
  Country: US (occurrence: US)
  Receive Date: 20201211
  Receipt Date: 20201211
  Transmission Date: 20210114
  Serious: Yes (Death)
  Sender: FDA-Public Use
  Company Number: None

PATIENT
  Age: 59 Year
  Sex: Female
  Weight: 81.6 kg

DRUGS (1)
  1. BAMLANIVIMAB (700 MG / 200 ML NACL 0.9% SOLUTION) [Suspect]
     Active Substance: BAMLANIVIMAB
     Indication: COVID-19
     Dosage: ?          OTHER FREQUENCY:ONCE;?
     Route: 041
     Dates: start: 20201130, end: 20201130

REACTIONS (1)
  - Death [None]

NARRATIVE: CASE EVENT DATE: 20201207
